FAERS Safety Report 18133153 (Version 1)
Quarter: 2020Q3

REPORT INFORMATION
  Report Type: Spontaneous
  Country: US (occurrence: US)
  Receive Date: 20200811
  Receipt Date: 20200811
  Transmission Date: 20201103
  Serious: No
  Sender: FDA-Public Use
  Company Number: US-GLENMARK PHARMACEUTICALS-2020GMK048250

PATIENT

DRUGS (5)
  1. FLUTICASONE PROPIONATE LOTION USP, 0.05% [Suspect]
     Active Substance: FLUTICASONE PROPIONATE
     Indication: PIGMENTATION DISORDER
  2. FLUTICASONE PROPIONATE LOTION USP, 0.05% [Suspect]
     Active Substance: FLUTICASONE PROPIONATE
     Indication: RASH
     Dosage: UNK, HS (APPLY TO AFFECTED ARE EVERY DAY AT BED TIME)
     Route: 061
     Dates: start: 20200409, end: 20200610
  3. CLINDAMYCIN PHOSPHATE. [Concomitant]
     Active Substance: CLINDAMYCIN PHOSPHATE
     Indication: PIGMENTATION DISORDER
  4. CLINDAMYCIN PHOSPHATE. [Concomitant]
     Active Substance: CLINDAMYCIN PHOSPHATE
     Indication: RASH
     Dosage: UNK, HS (APPLIED ONCE A DAY FOR 30 DAYS, BED TIME)
     Route: 061
  5. LEVOTHYROXINE. [Concomitant]
     Active Substance: LEVOTHYROXINE
     Indication: THYROID DISORDER
     Dosage: 125 MICROGRAM, AM (EVERY MORNING)
     Route: 065

REACTIONS (5)
  - Expired product administered [Unknown]
  - Pigmentation disorder [Recovering/Resolving]
  - Condition aggravated [Recovering/Resolving]
  - Drug ineffective [Unknown]
  - Rash [Recovering/Resolving]

NARRATIVE: CASE EVENT DATE: 2020
